FAERS Safety Report 4815831-3 (Version None)
Quarter: 2005Q4

REPORT INFORMATION
  Report Type: 
  Country: None (occurrence: None)
  Receive Date: 20051031
  Receipt Date: 20051024
  Transmission Date: 20060501
  Serious: No
  Sender: FDA-Public Use
  Company Number: 2005PK01964

PATIENT
  Age: 706 Month
  Sex: Female
  Weight: 90 kg

DRUGS (4)
  1. SEROQUEL [Suspect]
     Dosage: DAILY DOSE INCREASED TO 600 MG
     Route: 048
     Dates: start: 20041001, end: 20041101
  2. SEROQUEL [Suspect]
     Route: 048
     Dates: start: 20041101, end: 20050401
  3. SEROQUEL [Suspect]
     Route: 048
     Dates: start: 20050501
  4. INSULIN [Concomitant]
     Indication: DIABETES MELLITUS
     Route: 058

REACTIONS (1)
  - WHITE BLOOD CELL COUNT DECREASED [None]
